FAERS Safety Report 18712455 (Version 1)
Quarter: 2021Q1

REPORT INFORMATION
  Report Type: Spontaneous
  Country: FR (occurrence: FR)
  Receive Date: 20210107
  Receipt Date: 20210107
  Transmission Date: 20210419
  Serious: Yes (Other)
  Sender: FDA-Public Use
  Company Number: FR-PFIZER INC-2021006910

PATIENT
  Age: 70 Year
  Sex: Female

DRUGS (2)
  1. ERBITUX [Concomitant]
     Active Substance: CETUXIMAB
     Indication: ADENOCARCINOMA OF COLON
     Dosage: 250 MG/M2, UNK
     Route: 042
     Dates: start: 20200812
  2. BRAFTOVI [Suspect]
     Active Substance: ENCORAFENIB
     Indication: ADENOCARCINOMA OF COLON
     Dosage: 300 MG, DAILY
     Route: 048
     Dates: start: 20200812

REACTIONS (2)
  - Supraventricular extrasystoles [Recovering/Resolving]
  - Supraventricular tachycardia [Recovering/Resolving]

NARRATIVE: CASE EVENT DATE: 20200909
